FAERS Safety Report 12552063 (Version 2)
Quarter: 2016Q3

REPORT INFORMATION
  Report Type: Spontaneous
  Country: FR (occurrence: FR)
  Receive Date: 20160713
  Receipt Date: 20160802
  Transmission Date: 20161109
  Serious: Yes (Hospitalization)
  Sender: FDA-Public Use
  Company Number: FR-GLENMARK PHARMACEUTICALS INC, USA.-2016GMK023595

PATIENT
  Age: 58 Year
  Sex: Female

DRUGS (6)
  1. CITALOPRAM HYDROBROMIDE. [Suspect]
     Active Substance: CITALOPRAM HYDROBROMIDE
     Indication: PRODUCT USED FOR UNKNOWN INDICATION
     Dosage: 10 MG, UNK
     Route: 048
  2. ACEBUTOLOL [Suspect]
     Active Substance: ACEBUTOLOL
     Indication: PRODUCT USED FOR UNKNOWN INDICATION
     Dosage: 200 MG, UNK
     Route: 048
  3. ZOPICLONE [Suspect]
     Active Substance: ZOPICLONE
     Indication: PRODUCT USED FOR UNKNOWN INDICATION
     Dosage: 7.5 MG, UNK
     Route: 048
  4. OXAZEPAM. [Suspect]
     Active Substance: OXAZEPAM
     Indication: PRODUCT USED FOR UNKNOWN INDICATION
     Dosage: 50 MG, UNK
     Route: 048
  5. NAPROXEN. [Suspect]
     Active Substance: NAPROXEN
     Dosage: UNK
  6. NAPROXEN. [Suspect]
     Active Substance: NAPROXEN
     Indication: PRODUCT USED FOR UNKNOWN INDICATION
     Dosage: 26 G, UNK
     Route: 048

REACTIONS (14)
  - Coagulopathy [Recovering/Resolving]
  - Metabolic acidosis [Unknown]
  - Hypotension [Unknown]
  - Lactic acidosis [Unknown]
  - Haemodynamic instability [Recovering/Resolving]
  - Cardiac disorder [Recovering/Resolving]
  - Toxicity to various agents [Recovering/Resolving]
  - Haemostasis [Recovered/Resolved]
  - Pneumonia aspiration [Not Recovered/Not Resolved]
  - Bradycardia [Recovering/Resolving]
  - Hypocoagulable state [Recovering/Resolving]
  - Thrombocytopenia [Recovered/Resolved]
  - Intentional overdose [Unknown]
  - Electrocardiogram QT prolonged [Recovering/Resolving]
